FAERS Safety Report 16186056 (Version 1)
Quarter: 2019Q2

REPORT INFORMATION
  Report Type: Spontaneous
  Country: CN (occurrence: CN)
  Receive Date: 20190411
  Receipt Date: 20190411
  Transmission Date: 20190711
  Serious: Yes (Hospitalization)
  Sender: FDA-Public Use
  Company Number: CN-INCYTE CORPORATION-2019IN003640

PATIENT

DRUGS (1)
  1. JAKAVI [Suspect]
     Active Substance: RUXOLITINIB
     Indication: PRODUCT USED FOR UNKNOWN INDICATION
     Dosage: 8 DF, QD (8 CAPSULES /DAY BID) (4 CAPSULES EACH MORNING AND EVENING FOR NEARLY 10 MONTHS)
     Route: 048
     Dates: start: 20180603

REACTIONS (4)
  - Platelet count abnormal [Unknown]
  - Incorrect product formulation administered [Unknown]
  - Cardiac disorder [Unknown]
  - Cerebral infarction [Unknown]
